FAERS Safety Report 9417426 (Version 1)
Quarter: 2013Q3

REPORT INFORMATION
  Report Type: Spontaneous
  Country: US (occurrence: US)
  Receive Date: 20130724
  Receipt Date: 20130724
  Transmission Date: 20140515
  Serious: No
  Sender: FDA-Public Use
  Company Number: US-MYLANLABS-2013S1010140

PATIENT
  Age: 83 Year
  Sex: Female

DRUGS (3)
  1. CLONIDINE TRANSDERMAL SYSTEM USP [Suspect]
     Indication: BLOOD PRESSURE
     Dosage: QW
     Route: 062
     Dates: start: 20130404
  2. NORVASC [Concomitant]
     Route: 048
  3. SPIRONOLACTONE [Concomitant]
     Route: 048

REACTIONS (2)
  - Drug effect decreased [Not Recovered/Not Resolved]
  - Blood pressure increased [Not Recovered/Not Resolved]
